FAERS Safety Report 18079735 (Version 3)
Quarter: 2022Q3

REPORT INFORMATION
  Report Type: Report from Study
  Country: JP (occurrence: JP)
  Receive Date: 20200728
  Receipt Date: 20220714
  Transmission Date: 20221026
  Serious: Yes (Hospitalization, Other)
  Sender: FDA-Public Use
  Company Number: JP-GLAXOSMITHKLINE-JP2020JPN138172

PATIENT

DRUGS (46)
  1. MEPOLIZUMAB [Suspect]
     Active Substance: MEPOLIZUMAB
     Indication: Eosinophilic granulomatosis with polyangiitis
     Dosage: 300MG EVERY 4 WEEKS
     Route: 058
     Dates: start: 20190529, end: 20190529
  2. MEPOLIZUMAB [Suspect]
     Active Substance: MEPOLIZUMAB
     Dosage: 300 MG
     Route: 058
     Dates: start: 20190626, end: 20190626
  3. MEPOLIZUMAB [Suspect]
     Active Substance: MEPOLIZUMAB
     Dosage: 300 MG
     Route: 058
     Dates: start: 20190724, end: 20190724
  4. MEPOLIZUMAB [Suspect]
     Active Substance: MEPOLIZUMAB
     Dosage: 300 MG
     Route: 058
     Dates: start: 20190821, end: 20190821
  5. MEPOLIZUMAB [Suspect]
     Active Substance: MEPOLIZUMAB
     Dosage: 300 MG
     Route: 058
     Dates: start: 20190918, end: 20190918
  6. MEPOLIZUMAB [Suspect]
     Active Substance: MEPOLIZUMAB
     Dosage: 300 MG
     Route: 058
     Dates: start: 20191016, end: 20191016
  7. MEPOLIZUMAB [Suspect]
     Active Substance: MEPOLIZUMAB
     Dosage: 300 MG
     Route: 058
     Dates: start: 20191106, end: 20191106
  8. MEPOLIZUMAB [Suspect]
     Active Substance: MEPOLIZUMAB
     Dosage: 300 MG
     Route: 058
     Dates: start: 20191204, end: 20191204
  9. MEPOLIZUMAB [Suspect]
     Active Substance: MEPOLIZUMAB
     Dosage: 300 MG
     Route: 058
     Dates: start: 20200108, end: 20200108
  10. MEPOLIZUMAB [Suspect]
     Active Substance: MEPOLIZUMAB
     Dosage: 300 MG
     Route: 058
     Dates: start: 20200205, end: 20200205
  11. MEPOLIZUMAB [Suspect]
     Active Substance: MEPOLIZUMAB
     Dosage: 300 MG
     Route: 058
     Dates: start: 20200304, end: 20200304
  12. MEPOLIZUMAB [Suspect]
     Active Substance: MEPOLIZUMAB
     Dosage: 300 MG
     Route: 058
     Dates: start: 20200408, end: 20200408
  13. MEPOLIZUMAB [Suspect]
     Active Substance: MEPOLIZUMAB
     Dosage: 300 MG
     Route: 058
     Dates: start: 20200513, end: 20200513
  14. MEPOLIZUMAB [Suspect]
     Active Substance: MEPOLIZUMAB
     Dosage: 300 MG
     Route: 058
     Dates: start: 20200703, end: 20200703
  15. MEPOLIZUMAB [Suspect]
     Active Substance: MEPOLIZUMAB
     Dosage: 300 MG
     Route: 058
     Dates: start: 20200729, end: 20200729
  16. MEPOLIZUMAB [Suspect]
     Active Substance: MEPOLIZUMAB
     Dosage: 300 MG
     Route: 058
     Dates: start: 20200826, end: 20200826
  17. MEPOLIZUMAB [Suspect]
     Active Substance: MEPOLIZUMAB
     Dosage: 300 MG
     Route: 058
     Dates: start: 20200930, end: 20200930
  18. MEPOLIZUMAB [Suspect]
     Active Substance: MEPOLIZUMAB
     Dosage: 300 MG
     Route: 058
     Dates: start: 20201021, end: 20201021
  19. MEPOLIZUMAB [Suspect]
     Active Substance: MEPOLIZUMAB
     Dosage: 300 MG
     Route: 058
     Dates: start: 20201118, end: 20201118
  20. MEPOLIZUMAB [Suspect]
     Active Substance: MEPOLIZUMAB
     Dosage: 300 MG
     Route: 058
     Dates: start: 20201216, end: 20201216
  21. MEPOLIZUMAB [Suspect]
     Active Substance: MEPOLIZUMAB
     Dosage: 300 MG
     Route: 058
     Dates: start: 20210113, end: 20210113
  22. MEPOLIZUMAB [Suspect]
     Active Substance: MEPOLIZUMAB
     Dosage: 300 MG
     Route: 058
     Dates: start: 20210217, end: 20210217
  23. MEPOLIZUMAB [Suspect]
     Active Substance: MEPOLIZUMAB
     Dosage: 300 MG
     Route: 058
     Dates: start: 20210317, end: 20210317
  24. SERETIDE [Suspect]
     Active Substance: FLUTICASONE PROPIONATE\SALMETEROL XINAFOATE
     Dosage: 250 ?G, BID
     Route: 055
     Dates: end: 20190530
  25. PREDONINE [Suspect]
     Active Substance: PREDNISOLONE
     Indication: Eosinophilic granulomatosis with polyangiitis
     Dosage: 25 MG, 1D
     Dates: end: 20190515
  26. PREDONINE [Suspect]
     Active Substance: PREDNISOLONE
     Dosage: 20 MG, 1D
     Dates: start: 20190516, end: 20190529
  27. PREDONINE [Suspect]
     Active Substance: PREDNISOLONE
     Dosage: 15 MG, 1D
     Dates: start: 20190530, end: 20190626
  28. PREDONINE [Suspect]
     Active Substance: PREDNISOLONE
     Dosage: 10 MG, 1D
     Dates: start: 20190627, end: 20190724
  29. PREDONINE [Suspect]
     Active Substance: PREDNISOLONE
     Dosage: 9 MG, 1D
     Dates: start: 20190725, end: 20190821
  30. PREDONINE [Suspect]
     Active Substance: PREDNISOLONE
     Dosage: 8 MG, 1D
     Dates: start: 20190822, end: 20190918
  31. PREDONINE [Suspect]
     Active Substance: PREDNISOLONE
     Dosage: 7 MG, 1D
     Dates: start: 20190919, end: 20191016
  32. PREDONINE [Suspect]
     Active Substance: PREDNISOLONE
     Dosage: 8 MG, 1D
     Dates: start: 20191017, end: 20191204
  33. PREDONINE [Suspect]
     Active Substance: PREDNISOLONE
     Dosage: 7 MG, 1D
     Dates: start: 20191205, end: 20200205
  34. PREDONINE [Suspect]
     Active Substance: PREDNISOLONE
     Dosage: 6 MG, 1D
     Dates: start: 20200206, end: 20200408
  35. PREDONINE [Suspect]
     Active Substance: PREDNISOLONE
     Dosage: 5 MG, 1D
     Dates: start: 20200409, end: 20200930
  36. PREDONINE [Suspect]
     Active Substance: PREDNISOLONE
     Dosage: 4 MG, 1D
     Dates: start: 20201001, end: 20201216
  37. PREDONINE [Suspect]
     Active Substance: PREDNISOLONE
     Dosage: 3 MG, 1D
     Dates: start: 20201217, end: 20210217
  38. PREDONINE [Suspect]
     Active Substance: PREDNISOLONE
     Dosage: 2 MG, 1D
     Dates: start: 20210218
  39. DAIPHEN COMBINATION TABLETS [Concomitant]
     Indication: Antifungal prophylaxis
     Dosage: UNK
  40. NEXIUM [Concomitant]
     Active Substance: ESOMEPRAZOLE MAGNESIUM
     Indication: Gastritis prophylaxis
     Dosage: UNK
  41. ALENDRONATE SODIUM [Concomitant]
     Active Substance: ALENDRONATE SODIUM
     Indication: Osteoporosis prophylaxis
     Dosage: UNK
  42. AMLODIPINE BESYLATE\CANDESARTAN CILEXETIL [Concomitant]
     Active Substance: AMLODIPINE BESYLATE\CANDESARTAN CILEXETIL
     Dosage: UNK
  43. AMLODIPINE BESYLATE [Concomitant]
     Active Substance: AMLODIPINE BESYLATE
     Indication: Hypertension
     Dosage: UNK
  44. CANDESARTAN CILEXETIL [Concomitant]
     Active Substance: CANDESARTAN CILEXETIL
     Indication: Hypertension
     Dosage: UNK
  45. ROSUVASTATIN CALCIUM [Concomitant]
     Active Substance: ROSUVASTATIN CALCIUM
     Indication: Dyslipidaemia
     Dosage: UNK
  46. MAGNESIUM OXIDE [Concomitant]
     Active Substance: MAGNESIUM OXIDE
     Indication: Constipation
     Dosage: UNK

REACTIONS (2)
  - Osteonecrosis [Recovering/Resolving]
  - Inappropriate schedule of product administration [Unknown]

NARRATIVE: CASE EVENT DATE: 20200515
